FAERS Safety Report 9317624 (Version 2)
Quarter: 2013Q2

REPORT INFORMATION
  Report Type: Spontaneous
  Country: IT (occurrence: IT)
  Receive Date: 20130530
  Receipt Date: 20130605
  Transmission Date: 20140414
  Serious: Yes (Hospitalization)
  Sender: FDA-Public Use
  Company Number: IT-PFIZER INC-2013161653

PATIENT
  Age: 87 Year
  Sex: Female

DRUGS (10)
  1. BISOPROLOL FUMARATE [Suspect]
     Dosage: 1.25 MG, DAILY
     Route: 048
     Dates: start: 20130101, end: 20130518
  2. ALDACTONE [Suspect]
     Dosage: 1 DF, ALTERNATE DAY
     Route: 048
     Dates: start: 20130101, end: 20130518
  3. CARDIOASPIRIN [Concomitant]
     Dosage: UNK
  4. CATAPRES-TTS [Concomitant]
     Dosage: UNK
  5. VASEXTEN [Concomitant]
     Dosage: UNK
  6. ANTRA [Concomitant]
     Dosage: UNK
  7. CRESTOR [Concomitant]
     Dosage: UNK
  8. LASIX [Concomitant]
     Dosage: UNK
  9. URIVESC [Concomitant]
     Dosage: UNK
  10. RAMIPRIL [Concomitant]
     Indication: HYPERTENSION
     Dosage: UNK

REACTIONS (4)
  - Asthenia [Recovered/Resolved with Sequelae]
  - Hyperkalaemia [Recovered/Resolved with Sequelae]
  - Nodal arrhythmia [Recovered/Resolved with Sequelae]
  - Vertigo [Recovered/Resolved with Sequelae]
